FAERS Safety Report 8302725-4 (Version None)
Quarter: 2012Q2

REPORT INFORMATION
  Report Type: 
  Country: None (occurrence: None)
  Receive Date: 20120420
  Receipt Date: 20120413
  Transmission Date: 20120825
  Serious: Yes (Other)
  Sender: FDA-Public Use
  Company Number: DE-ELI_LILLY_AND_COMPANY-DE201202006204

PATIENT
  Age: 65 Year
  Sex: Female

DRUGS (5)
  1. BYDUREON [Suspect]
     Indication: TYPE 2 DIABETES MELLITUS
     Dosage: 2 MG, WEEKLY (1/W)
     Route: 058
     Dates: start: 20111219, end: 20120209
  2. ANALGIN [Concomitant]
     Dosage: UNK
  3. METFORMIN HCL [Concomitant]
     Dosage: 1000 MG, BID
  4. LISINOPRIL [Concomitant]
     Dosage: 10 MG, UNKNOWN
  5. ASPIRIN [Concomitant]

REACTIONS (1)
  - PANCREATITIS CHRONIC [None]
